FAERS Safety Report 5150845-8 (Version None)
Quarter: 2006Q4

REPORT INFORMATION
  Report Type: 
  Country: None (occurrence: None)
  Receive Date: 20061114
  Receipt Date: 20061101
  Transmission Date: 20070319
  Serious: Yes (Hospitalization)
  Sender: FDA-Public Use
  Company Number: US-ELI_LILLY_AND_COMPANY-US200611000195

PATIENT
  Sex: Female

DRUGS (9)
  1. HUMALOG [Suspect]
     Indication: BLOOD GLUCOSE INCREASED
     Dosage: SLIDING SCALE
     Dates: start: 20061030
  2. HUMALOG [Suspect]
     Dosage: SLIDING SCALE
     Dates: start: 20051220, end: 20060208
  3. HUMULIN 70/30 [Suspect]
     Indication: DIABETES MELLITUS
     Dosage: 35 U, UNK
     Dates: start: 19880101
  4. ACTOS /USA/ [Concomitant]
     Dosage: UNK, UNK
     Dates: start: 19980101, end: 20020601
  5. BYETTA [Concomitant]
  6. LANTUS [Concomitant]
     Dosage: 32 U, 2/D
     Dates: start: 20000101
  7. ZOCOR [Concomitant]
     Indication: BLOOD CHOLESTEROL
     Dates: start: 19990101, end: 20030101
  8. VITAMIN E [Concomitant]
  9. VITAMIN B6 [Concomitant]

REACTIONS (21)
  - ANOREXIA [None]
  - ANXIETY [None]
  - BLOOD CHOLESTEROL ABNORMAL [None]
  - BLOOD GLUCOSE FLUCTUATION [None]
  - BLOOD GLUCOSE INCREASED [None]
  - CHEST PAIN [None]
  - DECREASED APPETITE [None]
  - DYSGEUSIA [None]
  - FEELING ABNORMAL [None]
  - FEELING COLD [None]
  - GLYCOSYLATED HAEMOGLOBIN INCREASED [None]
  - INSOMNIA [None]
  - MALAISE [None]
  - NAUSEA [None]
  - ORAL FUNGAL INFECTION [None]
  - OVERWEIGHT [None]
  - PAIN IN EXTREMITY [None]
  - PALLOR [None]
  - PERIPHERAL VASCULAR DISORDER [None]
  - WEIGHT DECREASED [None]
  - WEIGHT LOSS POOR [None]
